FAERS Safety Report 8290323-0 (Version None)
Quarter: 2012Q2

REPORT INFORMATION
  Report Type: 
  Country: None (occurrence: None)
  Receive Date: 20120413
  Receipt Date: 20120413
  Transmission Date: 20120825
  Serious: Yes (Hospitalization)
  Sender: FDA-Public Use
  Company Number: None

PATIENT
  Age: 70 Year
  Sex: Male
  Weight: 75.5 kg

DRUGS (2)
  1. ASPIRIN [Suspect]
     Dosage: 650 MG EVERY DAY PO
     Route: 048
     Dates: start: 20110126, end: 20120217
  2. MELOXICAM [Suspect]
     Indication: PAIN
     Dosage: 15 MG EVERY DAY PO
     Route: 048
     Dates: start: 20110126, end: 20120217

REACTIONS (6)
  - GASTRIC HAEMORRHAGE [None]
  - ANAEMIA [None]
  - OESOPHAGEAL CANDIDIASIS [None]
  - UPPER GASTROINTESTINAL HAEMORRHAGE [None]
  - OESOPHAGITIS [None]
  - HAEMORRHAGE [None]
